FAERS Safety Report 20865653 (Version 4)
Quarter: 2023Q2

REPORT INFORMATION
  Report Type: Report from Study
  Country: NL (occurrence: NL)
  Receive Date: 20220524
  Receipt Date: 20230413
  Transmission Date: 20230722
  Serious: Yes (Hospitalization, Other)
  Sender: FDA-Public Use
  Company Number: NL-VER-202200051

PATIENT
  Age: 71 Year
  Sex: Male

DRUGS (2)
  1. TRIPTORELIN PAMOATE [Suspect]
     Active Substance: TRIPTORELIN PAMOATE
     Indication: Prostate cancer
     Route: 030
     Dates: start: 20220110
  2. TRIPTORELIN PAMOATE [Suspect]
     Active Substance: TRIPTORELIN PAMOATE
     Indication: Prostate cancer
     Dosage: OTHER BATCH/ LOT NUMBER WERE 04500, 04555 AND U19683 ALONG WITH EXPIRATION DATE DEC-2025, APR-2026 A
     Route: 030
     Dates: start: 20210309

REACTIONS (6)
  - Malaise [Recovering/Resolving]
  - Hip fracture [Recovered/Resolved with Sequelae]
  - Arthritis infective [Recovered/Resolved]
  - Cardiac arrest [Unknown]
  - Pneumonia [Recovering/Resolving]
  - Cardiac disorder [Recovering/Resolving]
